FAERS Safety Report 16170868 (Version 1)
Quarter: 2019Q2

REPORT INFORMATION
  Report Type: Spontaneous
  Country: US (occurrence: US)
  Receive Date: 20190408
  Receipt Date: 20190408
  Transmission Date: 20190711
  Serious: Yes (Other)
  Sender: FDA-Public Use
  Company Number: US-TEVA-2019-US-1033302

PATIENT
  Sex: Female

DRUGS (1)
  1. QVAR [Suspect]
     Active Substance: BECLOMETHASONE DIPROPIONATE
     Route: 065

REACTIONS (8)
  - Temperature intolerance [Unknown]
  - Colonic abscess [Unknown]
  - Fatigue [Unknown]
  - Myalgia [Unknown]
  - Constipation [Unknown]
  - Dry skin [Unknown]
  - Weight increased [Unknown]
  - Osteoporosis [Unknown]
